FAERS Safety Report 9856552 (Version 2)
Quarter: 2014Q1

REPORT INFORMATION
  Report Type: Report from Study
  Country: US (occurrence: US)
  Receive Date: 20140130
  Receipt Date: 20140130
  Transmission Date: 20141002
  Serious: Yes (Death)
  Sender: FDA-Public Use
  Company Number: PHEH2014US001833

PATIENT
  Age: 96 Year
  Sex: Female

DRUGS (1)
  1. EXELON PATCH [Suspect]
     Dosage: UNK UKN, UNK
     Route: 062

REACTIONS (7)
  - Death [Fatal]
  - Dysphagia [Unknown]
  - General physical health deterioration [Unknown]
  - Wound [Unknown]
  - Speech disorder [Unknown]
  - Gait disturbance [Unknown]
  - Fatigue [Unknown]
